FAERS Safety Report 26176022 (Version 1)
Quarter: 2025Q4

REPORT INFORMATION
  Report Type: Report from Study
  Country: US (occurrence: US)
  Receive Date: 20251218
  Receipt Date: 20251218
  Transmission Date: 20260117
  Serious: Yes (Hospitalization, Other)
  Sender: PFIZER
  Company Number: US-PFIZER INC-202500242723

PATIENT
  Age: 10 Year
  Sex: Male

DRUGS (1)
  1. GENOTROPIN [Suspect]
     Active Substance: SOMATROPIN
     Dosage: 12 MG

REACTIONS (5)
  - Peripheral coldness [Unknown]
  - Accidental overdose [Unknown]
  - Incorrect dose administered by device [Unknown]
  - Device infusion issue [Unknown]
  - Device physical property issue [Unknown]
